FAERS Safety Report 14526347 (Version 1)
Quarter: 2018Q1

REPORT INFORMATION
  Report Type: Report from Study
  Country: None (occurrence: RO)
  Receive Date: 20180213
  Receipt Date: 20180213
  Transmission Date: 20180509
  Serious: Yes (Other)
  Sender: FDA-Public Use
  Company Number: RO-ABBVIE-18K-135-2252112-00

PATIENT
  Age: 56 Year
  Sex: Female

DRUGS (2)
  1. INDAPAMID [Concomitant]
     Active Substance: INDAPAMIDE
     Indication: CARDIAC DISORDER
     Route: 048
  2. HUMIRA [Suspect]
     Active Substance: ADALIMUMAB
     Indication: PSORIASIS
     Route: 058
     Dates: start: 20130215, end: 20171216

REACTIONS (1)
  - Hepatitis B surface antigen positive [Not Recovered/Not Resolved]

NARRATIVE: CASE EVENT DATE: 20170725
